FAERS Safety Report 18999850 (Version 1)
Quarter: 2021Q1

REPORT INFORMATION
  Report Type: Spontaneous
  Country: GB (occurrence: GB)
  Receive Date: 20210311
  Receipt Date: 20210311
  Transmission Date: 20210420
  Serious: Yes (Hospitalization)
  Sender: FDA-Public Use
  Company Number: GB-PFIZER INC-2021234262

PATIENT
  Age: 22 Year
  Sex: Male

DRUGS (9)
  1. CISPLATIN. [Concomitant]
     Active Substance: CISPLATIN
  2. DOXORUBICIN [Concomitant]
     Active Substance: DOXORUBICIN
  3. MIRTAZAPINE. [Concomitant]
     Active Substance: MIRTAZAPINE
  4. COCODAMOL [Concomitant]
     Active Substance: ACETAMINOPHEN\CODEINE PHOSPHATE
  5. NAPROXEN. [Concomitant]
     Active Substance: NAPROXEN
  6. ZOPICLONE [Concomitant]
     Active Substance: ZOPICLONE
  7. MOVICOL [Concomitant]
     Active Substance: POLYETHYLENE GLYCOL 3350\POTASSIUM CHLORIDE\SODIUM BICARBONATE\SODIUM CHLORIDE
  8. METHOTREXATE SODIUM. [Suspect]
     Active Substance: METHOTREXATE SODIUM
     Indication: CHEMOTHERAPY
     Dosage: 1200 MG
     Route: 042
     Dates: start: 20210121
  9. OMEPRAZOLE. [Concomitant]
     Active Substance: OMEPRAZOLE

REACTIONS (1)
  - Systemic toxicity [Recovered/Resolved]

NARRATIVE: CASE EVENT DATE: 20210217
